FAERS Safety Report 7682414-X (Version None)
Quarter: 2011Q3

REPORT INFORMATION
  Report Type: 
  Country: None (occurrence: None)
  Receive Date: 20110815
  Receipt Date: 20110801
  Transmission Date: 20111222
  Serious: Yes (Hospitalization)
  Sender: FDA-Public Use
  Company Number: DE-NOVOPROD-331990

PATIENT
  Sex: Male
  Weight: 93 kg

DRUGS (6)
  1. L-THYROX [Concomitant]
     Dosage: UNK
     Route: 048
     Dates: start: 20090101
  2. VICTOZA [Suspect]
     Indication: TYPE 2 DIABETES MELLITUS
     Dosage: 1.2 MG, QD
     Route: 058
     Dates: end: 20110704
  3. METFORMIN HCL [Concomitant]
     Indication: DIABETES MELLITUS
     Dosage: 1000 MG, BID
     Route: 048
     Dates: end: 20110705
  4. DIOVAN [Concomitant]
     Indication: PRODUCT USED FOR UNKNOWN INDICATION
     Dosage: 160 MG, BID
     Route: 048
  5. CARMEN [Concomitant]
     Indication: HYPERTONIA
     Dosage: 10 MG, BID
     Route: 048
  6. BISPROLOL COMP [Concomitant]
     Indication: HYPERTONIA
     Dosage: 5 MG, BID

REACTIONS (2)
  - OEDEMATOUS PANCREATITIS [None]
  - BLOOD GLUCOSE INCREASED [None]
